FAERS Safety Report 21647200 (Version 2)
Quarter: 2023Q1

REPORT INFORMATION
  Report Type: Spontaneous
  Country: US (occurrence: None)
  Receive Date: 20221127
  Receipt Date: 20230117
  Transmission Date: 20230418
  Serious: No
  Sender: FDA-Public Use
  Company Number: 2022A368547

PATIENT
  Age: 10126 Day
  Sex: Male
  Weight: 86.2 kg

DRUGS (6)
  1. BUDESONIDE\FORMOTEROL FUMARATE DIHYDRATE [Suspect]
     Active Substance: BUDESONIDE\FORMOTEROL FUMARATE DIHYDRATE
     Indication: Lung disorder
     Dosage: 80MCG/4.5MCG, 2 PUFFS TWICE DAILY
     Route: 055
  2. BUDESONIDE\FORMOTEROL FUMARATE DIHYDRATE [Suspect]
     Active Substance: BUDESONIDE\FORMOTEROL FUMARATE DIHYDRATE
     Indication: Asthma
     Dosage: 80MCG/4.5MCG, 2 PUFFS TWICE DAILY
     Route: 055
  3. BUDESONIDE\FORMOTEROL FUMARATE DIHYDRATE [Suspect]
     Active Substance: BUDESONIDE\FORMOTEROL FUMARATE DIHYDRATE
     Indication: Hypersensitivity
     Dosage: 80MCG/4.5MCG, 2 PUFFS TWICE DAILY
     Route: 055
  4. BUDESONIDE\FORMOTEROL FUMARATE DIHYDRATE [Suspect]
     Active Substance: BUDESONIDE\FORMOTEROL FUMARATE DIHYDRATE
     Indication: Lung disorder
     Dosage: 80MCG/4.5MCG, 2 PUFFS ONCE DAILY
     Route: 055
  5. BUDESONIDE\FORMOTEROL FUMARATE DIHYDRATE [Suspect]
     Active Substance: BUDESONIDE\FORMOTEROL FUMARATE DIHYDRATE
     Indication: Asthma
     Dosage: 80MCG/4.5MCG, 2 PUFFS ONCE DAILY
     Route: 055
  6. BUDESONIDE\FORMOTEROL FUMARATE DIHYDRATE [Suspect]
     Active Substance: BUDESONIDE\FORMOTEROL FUMARATE DIHYDRATE
     Indication: Hypersensitivity
     Dosage: 80MCG/4.5MCG, 2 PUFFS ONCE DAILY
     Route: 055

REACTIONS (7)
  - Limb discomfort [Unknown]
  - Feeling abnormal [Unknown]
  - Wrong technique in device usage process [Unknown]
  - Drug dose omission by device [Unknown]
  - Intentional product use issue [Unknown]
  - Product use in unapproved indication [Unknown]
  - Device malfunction [Unknown]

NARRATIVE: CASE EVENT DATE: 20221024
